FAERS Safety Report 23969376 (Version 1)
Quarter: 2024Q2

REPORT INFORMATION
  Report Type: Report from Study
  Country: KR (occurrence: KR)
  Receive Date: 20240612
  Receipt Date: 20240612
  Transmission Date: 20240716
  Serious: Yes (Death, Hospitalization, Other)
  Sender: FDA-Public Use
  Company Number: KR-PFIZER INC-PV202400075800

PATIENT
  Age: 73 Year
  Sex: Male
  Weight: 71 kg

DRUGS (22)
  1. AVIBACTAM SODIUM\CEFTAZIDIME [Suspect]
     Active Substance: AVIBACTAM SODIUM\CEFTAZIDIME
     Indication: Abdominal infection
     Dosage: TIME INTERVAL: 0.33333333 DAYS: 7.5 G THREE TIMES A DAY
     Route: 042
     Dates: start: 20240527
  2. KETOTOP EL [Concomitant]
     Indication: Back pain
     Dosage: PLASTER 7PATCH/PK
     Route: 062
     Dates: start: 20240528, end: 20240530
  3. CODEINE PHOSPHATE [Concomitant]
     Active Substance: CODEINE PHOSPHATE
     Indication: Upper respiratory tract infection
     Dosage: 20 MG
     Route: 048
     Dates: start: 20240520, end: 20240602
  4. ACETAMINOPHEN\TRAMADOL [Concomitant]
     Active Substance: ACETAMINOPHEN\TRAMADOL
     Indication: Back pain
     Dosage: UNK
     Route: 048
     Dates: start: 20240528, end: 20240602
  5. AMIKACIN SULFATE [Concomitant]
     Active Substance: AMIKACIN SULFATE
     Indication: Urinary tract infection
     Dosage: 250 MG
     Route: 042
     Dates: start: 20240527, end: 20240528
  6. K CONTIN [Concomitant]
     Indication: Hypokalaemia
     Dosage: 600 MG
     Route: 048
     Dates: start: 20240529, end: 20240602
  7. Norpin [Concomitant]
     Indication: Septic shock
     Dosage: 10MG/10ML
     Route: 042
     Dates: start: 20240526, end: 20240528
  8. PROFA [Concomitant]
     Indication: Febrile neutropenia
     Dosage: INFUSION, 1G/100ML
     Route: 042
     Dates: start: 20240527, end: 20240530
  9. ALBUMIN HUMAN [Concomitant]
     Active Substance: ALBUMIN HUMAN
     Indication: Hypoalbuminaemia
     Dosage: 100 ML
     Route: 042
     Dates: start: 20240603, end: 20240608
  10. PANTOPRAZOLE SODIUM [Concomitant]
     Active Substance: PANTOPRAZOLE SODIUM
     Indication: Dyspepsia
     Dosage: 40 MG
     Route: 042
     Dates: start: 20240527, end: 20240608
  11. TRANEXAMIC ACID [Concomitant]
     Active Substance: TRANEXAMIC ACID
     Indication: Haematuria
     Dosage: 500 MG
     Route: 042
     Dates: start: 20240528, end: 20240607
  12. ERDOSTEINE [Concomitant]
     Active Substance: ERDOSTEINE
     Indication: Upper respiratory tract infection
     Dosage: 300 MG
     Route: 048
     Dates: start: 20240529, end: 20240602
  13. ATIVAN [Concomitant]
     Active Substance: LORAZEPAM
     Indication: Delirium
     Dosage: 2 MG
     Route: 042
     Dates: start: 20240605, end: 20240608
  14. TEICOCIN [Concomitant]
     Indication: Septic shock
     Dosage: 400 MG
     Route: 042
     Dates: start: 20240526, end: 20240526
  15. ACETYLCYSTEINE [Concomitant]
     Active Substance: ACETYLCYSTEINE
     Indication: Upper respiratory tract infection
     Dosage: 600MG/6ML/A
     Route: 042
     Dates: start: 20240603, end: 20240608
  16. ACETYLCYSTEINE [Concomitant]
     Active Substance: ACETYLCYSTEINE
     Indication: Upper respiratory tract infection
     Dosage: 600MG/6ML/A
     Route: 042
     Dates: start: 20240527, end: 20240528
  17. ACETYLCYSTEINE [Concomitant]
     Active Substance: ACETYLCYSTEINE
     Indication: Upper respiratory tract infection
     Dosage: 200 MG
     Route: 048
     Dates: start: 20240522, end: 20240526
  18. DIAZEPAM [Concomitant]
     Active Substance: DIAZEPAM
     Indication: Delirium
     Dosage: 10 MG
     Route: 042
     Dates: start: 20240530, end: 20240530
  19. TAZOPERAN [Concomitant]
     Indication: Urinary tract infection
     Dosage: 4.5 G
     Route: 042
     Dates: start: 20240524, end: 20240526
  20. MEROPENEM [Concomitant]
     Active Substance: MEROPENEM
     Indication: Abdominal pain
     Dosage: 1 G
     Route: 042
     Dates: start: 20240526, end: 20240526
  21. AMBISOME [Concomitant]
     Active Substance: AMPHOTERICIN B
     Indication: Febrile neutropenia
     Dosage: 50 MG
     Route: 042
     Dates: start: 20240527, end: 20240608
  22. POTASSIUM CHLORIDE [Concomitant]
     Active Substance: POTASSIUM CHLORIDE
     Indication: Hypokalaemia
     Dosage: KCI-20, 20MEQ/20ML
     Route: 042
     Dates: start: 20240529, end: 20240602

REACTIONS (3)
  - Enterobacter bacteraemia [Fatal]
  - Condition aggravated [Fatal]
  - Acute kidney injury [Not Recovered/Not Resolved]

NARRATIVE: CASE EVENT DATE: 20240608
